FAERS Safety Report 21996039 (Version 1)
Quarter: 2023Q1

REPORT INFORMATION
  Report Type: Spontaneous
  Country: US (occurrence: US)
  Receive Date: 20230215
  Receipt Date: 20230215
  Transmission Date: 20230418
  Serious: Yes (Death, Hospitalization)
  Sender: FDA-Public Use
  Company Number: US-ENDO PHARMACEUTICALS INC-2023-000834

PATIENT
  Age: 17 Year
  Sex: Female

DRUGS (3)
  1. IBUPROFEN [Suspect]
     Active Substance: IBUPROFEN
     Indication: Product used for unknown indication
     Dosage: UNK UNKNOWN, UNKNOWN (REPORTEDLY INGESTED NEARLY 200 GRAMS)
     Route: 048
  2. SERTRALINE [Concomitant]
     Active Substance: SERTRALINE HYDROCHLORIDE
     Indication: Product used for unknown indication
     Dosage: 150 MG, DAILY
     Route: 065
  3. ALBUTEROL [Concomitant]
     Active Substance: ALBUTEROL
     Indication: Product used for unknown indication
     Dosage: UNK UNKNOWN, UNKNOWN

REACTIONS (5)
  - Multiple organ dysfunction syndrome [Fatal]
  - Overdose [Fatal]
  - Unresponsive to stimuli [Unknown]
  - Blood glucose decreased [Recovered/Resolved]
  - Vomiting [Unknown]
